FAERS Safety Report 7912108-4 (Version None)
Quarter: 2011Q4

REPORT INFORMATION
  Report Type: 
  Country: None (occurrence: None)
  Receive Date: 20111114
  Receipt Date: 20111110
  Transmission Date: 20120403
  Serious: Yes (Life-Threatening, Hospitalization)
  Sender: FDA-Public Use
  Company Number: GB-TEVA-299955ISR

PATIENT
  Age: 79 Year
  Sex: Female

DRUGS (14)
  1. OMEPRAZOLE [Concomitant]
     Dosage: 20 MILLIGRAM; MORNING DOSE, FROM ADMISSION TO DISCHARGE
  2. ZOLPIDEM [Concomitant]
     Dates: start: 20110816, end: 20110825
  3. PHENYTOIN [Concomitant]
     Dates: start: 20110805
  4. TRAVOPROST [Concomitant]
  5. BISOPROLOL [Concomitant]
     Dosage: CONTINUED UNTIL DISCHAGE
     Dates: start: 20110809
  6. ACETAMINOPHEN AND CODEINE PHOSPHATE [Concomitant]
  7. ADCAL-D3 [Concomitant]
     Dosage: 2 DOSAGE FORMS; FROM ADMISSION TO DISCHARGE
  8. LAMOTRIGINE [Suspect]
     Indication: CONVULSION
     Dosage: 50 MILLIGRAM;
     Route: 048
     Dates: start: 20110807, end: 20110810
  9. ASPIRIN [Concomitant]
     Dosage: STOPPED ON ADMISSION DUE TO HAEMORRHAGIC STROKE. RESTARTED ON DISCHARGE.
  10. BENDROFLUMETHIAZIDE [Concomitant]
     Dosage: 2.5 MILLIGRAM; MORNING DOSE, FROM ADMISSION TO DISCHARGE
  11. PERINDOPRIL ERBUMINE [Concomitant]
     Dosage: 2 MILLIGRAM; MORNING DOSE, FROM ADMISSION TO DISCHARGE
     Dates: start: 20110805
  12. ACETAMINOPHEN [Concomitant]
     Dosage: GIVEN SEVERAL TIMES DURING ADMISSION, BEFORE AND AFTER REACTION
  13. LAMOTRIGINE [Suspect]
     Dosage: 100 MILLIGRAM;
     Route: 048
     Dates: start: 20110811, end: 20110822
  14. CITALOPRAM HYDROBROMIDE [Concomitant]
     Dosage: 10 MILLIGRAM; MORNING DOSE, FROM ADMISSION TO DISCHARGE

REACTIONS (10)
  - NEUTROPENIC SEPSIS [None]
  - RASH ERYTHEMATOUS [None]
  - HAEMOGLOBIN DECREASED [None]
  - PYREXIA [None]
  - PALLOR [None]
  - ESCHERICHIA SEPSIS [None]
  - SKIN WARM [None]
  - NEUTROPHIL COUNT DECREASED [None]
  - PLATELET COUNT DECREASED [None]
  - ESCHERICHIA URINARY TRACT INFECTION [None]
